FAERS Safety Report 14727225 (Version 1)
Quarter: 2018Q2

REPORT INFORMATION
  Report Type: Spontaneous
  Country: US (occurrence: US)
  Receive Date: 20180406
  Receipt Date: 20180406
  Transmission Date: 20180711
  Serious: Yes (Death)
  Sender: FDA-Public Use
  Company Number: US-LPDUSPRD-20180469

PATIENT
  Age: 19 Year
  Sex: Male

DRUGS (1)
  1. MANNITOL INJECTION, USP (4050-25) [Suspect]
     Active Substance: MANNITOL
     Dosage: UNKNOWN
     Route: 065

REACTIONS (5)
  - Asthma [Fatal]
  - Toxicity to various agents [Fatal]
  - Coma [Fatal]
  - Depressed level of consciousness [Fatal]
  - Bronchial hyperreactivity [Fatal]

NARRATIVE: CASE EVENT DATE: 2015
